FAERS Safety Report 7462917-3 (Version None)
Quarter: 2011Q2

REPORT INFORMATION
  Report Type: 
  Country: None (occurrence: None)
  Receive Date: 20110506
  Receipt Date: 20101220
  Transmission Date: 20111010
  Serious: Yes (Hospitalization, Other)
  Sender: FDA-Public Use
  Company Number: US-BAYER-201023012NA

PATIENT
  Age: 21 Year
  Sex: Female
  Weight: 75 kg

DRUGS (12)
  1. NATALCARE [Concomitant]
     Indication: PRENATAL CARE
     Dosage: UNK
     Dates: start: 20061101, end: 20070601
  2. NEXIUM [Concomitant]
     Dosage: 40 MG, QD
     Route: 048
  3. NATALCARE [Concomitant]
     Dosage: UNK
     Dates: start: 20091101, end: 20100601
  4. FOLIC ACID [Concomitant]
     Indication: PRENATAL CARE
     Dosage: 1 MG, QD
     Dates: start: 20061101, end: 20070601
  5. ALBUTEROL [Concomitant]
     Dosage: UNK UNK, QID
     Route: 055
     Dates: start: 20070101
  6. NSAID'S [Concomitant]
     Dosage: UNK
     Dates: start: 20070101
  7. PROMETHAZINE [Concomitant]
     Indication: MULTIPLE ALLERGIES
     Dosage: 25 MG, UNK
  8. LORTAB [Concomitant]
     Dosage: UNK UNK, PRN
  9. DROSPIRENONE AND ETHINYL ESTRADIOL [Suspect]
     Indication: CONTRACEPTION
     Dosage: UNK
     Route: 048
     Dates: start: 20081201, end: 20090501
  10. ANTIVERT [Concomitant]
     Dosage: 25 MG, TID
  11. NASACORT AQ [Concomitant]
     Route: 045
  12. YASMIN [Suspect]
     Indication: CONTRACEPTION
     Dosage: UNK
     Route: 048
     Dates: start: 20071201, end: 20081201

REACTIONS (6)
  - GALLBLADDER DISORDER [None]
  - VOMITING [None]
  - BILIARY COLIC [None]
  - ABDOMINAL PAIN [None]
  - CHOLECYSTITIS CHRONIC [None]
  - PREGNANCY ON ORAL CONTRACEPTIVE [None]
